FAERS Safety Report 16009710 (Version 1)
Quarter: 2019Q1

REPORT INFORMATION
  Report Type: Spontaneous
  Country: US (occurrence: US)
  Receive Date: 20190225
  Receipt Date: 20190225
  Transmission Date: 20190418
  Serious: Yes (Other)
  Sender: FDA-Public Use
  Company Number: US-ORPHAN EUROPE-2063130

PATIENT
  Sex: Female

DRUGS (6)
  1. VITAMIN E [Concomitant]
     Active Substance: .ALPHA.-TOCOPHEROL
  2. VITAMIN C [Concomitant]
     Active Substance: ASCORBIC ACID
  3. SELENIUM [Concomitant]
     Active Substance: SELENIUM
  4. CARNITINE [Concomitant]
     Active Substance: CARNITINE
     Route: 042
  5. DEXTROSE. [Concomitant]
     Active Substance: DEXTROSE
     Route: 042
  6. CARBAGLU [Suspect]
     Active Substance: CARGLUMIC ACID
     Indication: HYPERAMMONAEMIA

REACTIONS (7)
  - Off label use [Unknown]
  - Device related sepsis [None]
  - Lactic acidosis [None]
  - Acute hepatic failure [None]
  - Seizure [Unknown]
  - Multiple organ dysfunction syndrome [None]
  - Coagulopathy [None]
